FAERS Safety Report 6964502-6 (Version None)
Quarter: 2010Q3

REPORT INFORMATION
  Report Type: 
  Country: None (occurrence: None)
  Receive Date: 20100903
  Receipt Date: 20100824
  Transmission Date: 20110219
  Serious: Yes (Other)
  Sender: FDA-Public Use
  Company Number: US-PFIZER INC-2010107331

PATIENT
  Sex: Male
  Weight: 63.492 kg

DRUGS (11)
  1. LIPITOR [Suspect]
     Indication: BLOOD CHOLESTEROL INCREASED
     Dosage: 20 MG, 1X/DAY
     Route: 048
  2. LIPITOR [Suspect]
     Dosage: 40 MG, 1X/DAY
  3. LIPITOR [Suspect]
     Dosage: 60 MG, 1X/DAY
     Route: 048
  4. SYNTHROID [Concomitant]
     Indication: HYPOTHYROIDISM
     Dosage: 0.75 MG, 1X/DAY
  5. HYDROCODONE [Concomitant]
     Dosage: 10/325 MG, 2X/DAY
  6. ACETYLSALICYLIC ACID [Concomitant]
     Dosage: UNK
  7. GEMFIBROZIL [Concomitant]
     Dosage: 600 MG, 1X/DAY
  8. ZETIA [Concomitant]
     Indication: BLOOD CHOLESTEROL INCREASED
     Dosage: 10 MG, 1X/DAY
  9. WARFARIN [Concomitant]
     Indication: HEART VALVE REPLACEMENT
     Dosage: 3.75 MG, 1X/DAY
  10. RAMIPRIL [Concomitant]
     Indication: HYPERTENSION
     Dosage: 2.5 MG, 1X/DAY
  11. METFORMIN [Concomitant]
     Indication: DIABETES MELLITUS
     Dosage: 500 MG, 1X/DAY

REACTIONS (3)
  - BLOOD CHOLESTEROL INCREASED [None]
  - DIABETES MELLITUS [None]
  - DRUG EFFECT DECREASED [None]
